FAERS Safety Report 5480107-0 (Version None)
Quarter: 2007Q4

REPORT INFORMATION
  Report Type: 
  Country: None (occurrence: None)
  Receive Date: 20071009
  Receipt Date: 20071004
  Transmission Date: 20080405
  Serious: Yes (Death, Hospitalization)
  Sender: FDA-Public Use
  Company Number: PHRM2007FR02308

PATIENT
  Age: 18 Year
  Sex: Male

DRUGS (12)
  1. IMMUNOGLOBULINS [Suspect]
     Indication: ERYTHROPENIA
     Route: 042
     Dates: start: 20070301
  2. CORTICOSTEROIDS [Concomitant]
  3. RAPAMUNE [Concomitant]
     Dates: start: 20070301
  4. ARANESP [Concomitant]
  5. CORTANCYL [Concomitant]
     Dosage: 12.5 MG PER DAY
  6. TRIATEC [Concomitant]
     Dosage: 1.25 MG PER DAY
  7. ORACILLINE [Concomitant]
     Dosage: 1 MIU, BID
  8. ZELITREX  /DEN/ [Concomitant]
     Dosage: 400 MG PER DAY
  9. MAGNE B6 [Concomitant]
  10. LEDERFOLIN [Concomitant]
  11. NEORAL [Suspect]
     Indication: BONE MARROW TRANSPLANT
     Route: 048
     Dates: start: 20070301, end: 20070301
  12. SIROLIMUS [Concomitant]

REACTIONS (20)
  - BLOOD CREATININE INCREASED [None]
  - BONE MARROW TRANSPLANT [None]
  - DYSPNOEA [None]
  - GENERAL PHYSICAL HEALTH DETERIORATION [None]
  - HAEMOLYSIS [None]
  - HYPERTENSION [None]
  - HYPOXIA [None]
  - KLEBSIELLA INFECTION [None]
  - LUNG DISORDER [None]
  - LUNG INFILTRATION [None]
  - MECHANICAL VENTILATION [None]
  - MORAXELLA INFECTION [None]
  - NEUROMUSCULAR BLOCKING THERAPY [None]
  - NOSOCOMIAL INFECTION [None]
  - PERICARDIAL DRAINAGE [None]
  - PERICARDIAL EFFUSION [None]
  - PROTEINURIA [None]
  - RENAL FAILURE CHRONIC [None]
  - RESPIRATORY FAILURE [None]
  - THROMBOTIC MICROANGIOPATHY [None]
